FAERS Safety Report 16206085 (Version 2)
Quarter: 2019Q2

REPORT INFORMATION
  Report Type: Report from Study
  Country: CA (occurrence: CA)
  Receive Date: 20190417
  Receipt Date: 20190507
  Transmission Date: 20190711
  Serious: Yes (Other)
  Sender: FDA-Public Use
  Company Number: CA-GLAXOSMITHKLINE-CA2019GSK060023

PATIENT
  Age: 75 Year
  Sex: Female

DRUGS (2)
  1. MEPOLIZUMAB [Suspect]
     Active Substance: MEPOLIZUMAB
     Indication: ASTHMA
     Dosage: 100 MG, Z (MONTHLY)
     Route: 042
  2. MEPOLIZUMAB [Suspect]
     Active Substance: MEPOLIZUMAB
     Dosage: 100 MG, Z (MONTHLY)
     Route: 042

REACTIONS (7)
  - Increased bronchial secretion [Unknown]
  - Nasopharyngitis [Unknown]
  - Cough [Unknown]
  - Cardiac disorder [Unknown]
  - Dyspnoea [Unknown]
  - Sputum discoloured [Unknown]
  - Arrhythmia [Unknown]

NARRATIVE: CASE EVENT DATE: 201803
